FAERS Safety Report 4810003-0 (Version None)
Quarter: 2005Q4

REPORT INFORMATION
  Report Type: 
  Country: None (occurrence: None)
  Receive Date: 20051024
  Receipt Date: 20051006
  Transmission Date: 20060501
  Serious: Yes (Death)
  Sender: FDA-Public Use
  Company Number: 032-38

PATIENT
  Age: 77 Year
  Sex: Female

DRUGS (3)
  1. TEVETEN [Suspect]
     Indication: HYPERTENSION
     Dosage: 600 MG PO
     Route: 048
     Dates: start: 20040429
  2. FUROSEMIDE [Concomitant]
  3. ACETAZOLAMIDE [Concomitant]

REACTIONS (2)
  - ENDOMETRIAL CANCER [None]
  - NEOPLASM RECURRENCE [None]
